FAERS Safety Report 4726457-4 (Version None)
Quarter: 2005Q3

REPORT INFORMATION
  Report Type: 
  Country: None (occurrence: None)
  Receive Date: 20050725
  Receipt Date: 20050523
  Transmission Date: 20060218
  Serious: No
  Sender: FDA-Public Use
  Company Number: USA050597761

PATIENT
  Age: 55 Year
  Sex: Female
  Weight: 73 kg

DRUGS (5)
  1. STRATTERA [Suspect]
     Indication: DEPRESSION
     Dosage: 10 MG
     Dates: start: 20050401
  2. PROZAC [Suspect]
     Indication: DEPRESSION
     Dosage: 10 MG DAY
     Dates: start: 19900101, end: 20030101
  3. PROZAC WEEKLY [Suspect]
  4. TRAZODONE [Concomitant]
  5. CLONAZEPAM [Concomitant]

REACTIONS (8)
  - CONFUSIONAL STATE [None]
  - CONSTIPATION [None]
  - DEPRESSION [None]
  - DRUG INEFFECTIVE [None]
  - DRY MOUTH [None]
  - FEELING OF DESPAIR [None]
  - INSOMNIA [None]
  - SUICIDAL IDEATION [None]
